FAERS Safety Report 4558817-9 (Version None)
Quarter: 2005Q1

REPORT INFORMATION
  Report Type: 
  Country: None (occurrence: None)
  Receive Date: 20050121
  Receipt Date: 20050111
  Transmission Date: 20050727
  Serious: Yes (Hospitalization)
  Sender: FDA-Public Use
  Company Number: CN-GLAXOSMITHKLINE-B0364684A

PATIENT
  Age: 30 Year
  Sex: Male

DRUGS (1)
  1. HEPTODIN [Suspect]
     Indication: HEPATITIS B
     Dosage: 100MG PER DAY
     Route: 048
     Dates: start: 20010901

REACTIONS (5)
  - ALANINE AMINOTRANSFERASE INCREASED [None]
  - DISEASE RECURRENCE [None]
  - HEPATITIS [None]
  - HEPATITIS B VIRUS [None]
  - JAUNDICE [None]
